FAERS Safety Report 7388091-X (Version None)
Quarter: 2011Q2

REPORT INFORMATION
  Report Type: 
  Country: None (occurrence: None)
  Receive Date: 20110401
  Receipt Date: 20110318
  Transmission Date: 20111010
  Serious: Yes (Hospitalization, Other)
  Sender: FDA-Public Use
  Company Number: US-ELI_LILLY_AND_COMPANY-US201102005809

PATIENT
  Age: 74 Year
  Sex: Female

DRUGS (13)
  1. IBUPROFEN [Concomitant]
  2. CASTOR OIL [Concomitant]
  3. GABAPENTIN [Concomitant]
  4. OMEPRAZOLE [Concomitant]
  5. FORTEO [Suspect]
     Indication: BONE DISORDER
     Dosage: UNK, UNK
     Route: 065
  6. FORTEO [Suspect]
     Dosage: UNK UNK, UNKNOWN
     Route: 065
  7. ASPIRIN LOW [Concomitant]
  8. FORTEO [Suspect]
     Dosage: UNK, UNKNOWN
     Route: 065
  9. OXYGEN [Concomitant]
  10. FERROUS SULFATE TAB [Concomitant]
  11. ALBUTEROL [Concomitant]
  12. CALCIUM [Concomitant]
  13. ACETAMINOPHEN AND HYDROCODONE BITARTRATE [Concomitant]

REACTIONS (3)
  - FALL [None]
  - NERVE COMPRESSION [None]
  - MOVEMENT DISORDER [None]
